FAERS Safety Report 7414585-4 (Version None)
Quarter: 2011Q2

REPORT INFORMATION
  Report Type: 
  Country: None (occurrence: None)
  Receive Date: 20110414
  Receipt Date: 20110405
  Transmission Date: 20111010
  Serious: Yes (Other)
  Sender: FDA-Public Use
  Company Number: JP-BRISTOL-MYERS SQUIBB COMPANY-15591944

PATIENT
  Age: 33 Year
  Sex: Female
  Weight: 75 kg

DRUGS (3)
  1. RISPERIDONE [Concomitant]
     Route: 048
     Dates: start: 20110218, end: 20110307
  2. RISPERDAL [Concomitant]
     Dosage: TABS:1MG:UNK-13FEB2011 ORAL SOLUTION:4ML:20FEB2011-ONG
     Route: 048
     Dates: end: 20110213
  3. ABILIFY [Suspect]
     Indication: SCHIZOPHRENIA
     Route: 048
     Dates: start: 20101001, end: 20110212

REACTIONS (2)
  - ABORTION INDUCED [None]
  - PREGNANCY [None]
